FAERS Safety Report 12046933 (Version 1)
Quarter: 2016Q1

REPORT INFORMATION
  Report Type: Spontaneous
  Country: FR (occurrence: FR)
  Receive Date: 20160208
  Receipt Date: 20160208
  Transmission Date: 20160526
  Serious: Yes (Hospitalization)
  Sender: FDA-Public Use
  Company Number: FR-GLAXOSMITHKLINE-FR2016GSK015415

PATIENT
  Age: 2 Year
  Sex: Female
  Weight: 11 kg

DRUGS (9)
  1. COQUELUSEDAL [Suspect]
     Active Substance: GELSEMIUM SEMPERVIRENS ROOT\GRINDELIA HIRSUTULA FLOWERING TOP\NIAOULI OIL
     Indication: TRACHEITIS
  2. COQUELUSEDAL [Suspect]
     Active Substance: GELSEMIUM SEMPERVIRENS ROOT\GRINDELIA HIRSUTULA FLOWERING TOP\NIAOULI OIL
     Indication: PYREXIA
  3. ZINNAT [Suspect]
     Active Substance: CEFUROXIME AXETIL
     Indication: PYREXIA
  4. COQUELUSEDAL [Suspect]
     Active Substance: GELSEMIUM SEMPERVIRENS ROOT\GRINDELIA HIRSUTULA FLOWERING TOP\NIAOULI OIL
     Indication: NASOPHARYNGITIS
     Dosage: 1 DF, QD
     Route: 054
     Dates: start: 20160110, end: 20160110
  5. DOLIPRANE [Suspect]
     Active Substance: ACETAMINOPHEN
     Indication: PYREXIA
  6. ZINNAT [Suspect]
     Active Substance: CEFUROXIME AXETIL
     Indication: NASOPHARYNGITIS
     Dosage: 1 DF, BID
     Route: 048
     Dates: start: 20160110, end: 20160110
  7. DOLIPRANE [Suspect]
     Active Substance: ACETAMINOPHEN
     Indication: TRACHEITIS
  8. ZINNAT [Suspect]
     Active Substance: CEFUROXIME AXETIL
     Indication: TRACHEITIS
  9. DOLIPRANE [Suspect]
     Active Substance: ACETAMINOPHEN
     Indication: NASOPHARYNGITIS
     Dosage: UNK
     Route: 048
     Dates: start: 20160110, end: 20160111

REACTIONS (1)
  - Lethargy [Recovered/Resolved]

NARRATIVE: CASE EVENT DATE: 20160111
